FAERS Safety Report 8312728-1 (Version None)
Quarter: 2012Q2

REPORT INFORMATION
  Report Type: 
  Country: None (occurrence: None)
  Receive Date: 20120426
  Receipt Date: 20120417
  Transmission Date: 20120825
  Serious: Yes (Hospitalization)
  Sender: FDA-Public Use
  Company Number: US-BIOGENIDEC-2012BI013437

PATIENT
  Age: 60 Year
  Sex: Female
  Weight: 71 kg

DRUGS (8)
  1. AMPYRA [Concomitant]
     Route: 048
     Dates: start: 20110601
  2. PRIMIDONE [Concomitant]
  3. GABAPENTIN [Concomitant]
     Dates: start: 20050901
  4. METHADONE HCL [Concomitant]
  5. AVONEX [Suspect]
     Indication: MULTIPLE SCLEROSIS
     Route: 030
     Dates: start: 20100201
  6. TIZANIDINE HCL [Concomitant]
  7. DURAGESIC-100 [Concomitant]
  8. SERTRALINE HYDROCHLORIDE [Concomitant]

REACTIONS (7)
  - ABDOMINAL PAIN [None]
  - SMALL INTESTINAL OBSTRUCTION [None]
  - RENAL FAILURE ACUTE [None]
  - PNEUMONIA [None]
  - HEPATOMEGALY [None]
  - POST PROCEDURAL COMPLICATION [None]
  - PANCREATITIS [None]
